FAERS Safety Report 18753292 (Version 7)
Quarter: 2025Q2

REPORT INFORMATION
  Report Type: Report from Study
  Country: US (occurrence: US)
  Receive Date: 20210118
  Receipt Date: 20250617
  Transmission Date: 20250716
  Serious: Yes (Hospitalization, Other)
  Sender: TAKEDA
  Company Number: US-TAKEDA-US202006147

PATIENT
  Age: 71 Year
  Sex: Female

DRUGS (3)
  1. HUMAN IMMUNOGLOBULIN G [Suspect]
     Active Substance: HUMAN IMMUNOGLOBULIN G
     Indication: Primary immunodeficiency syndrome
  2. HUMAN IMMUNOGLOBULIN G [Suspect]
     Active Substance: HUMAN IMMUNOGLOBULIN G
     Indication: Hypogammaglobulinaemia
     Dosage: UNK UNK, 1/WEEK
  3. HUMAN IMMUNOGLOBULIN G [Suspect]
     Active Substance: HUMAN IMMUNOGLOBULIN G

REACTIONS (13)
  - Back disorder [Unknown]
  - Impaired healing [Unknown]
  - Abscess [Unknown]
  - Infection [Unknown]
  - Blood pressure decreased [Unknown]
  - Cerebrovascular accident [Unknown]
  - Food allergy [Unknown]
  - Inability to afford medication [Unknown]
  - COVID-19 [Unknown]
  - Parosmia [Unknown]
  - Shoulder fracture [Unknown]
  - Cardiac murmur [Unknown]
  - Inappropriate schedule of product administration [Unknown]

NARRATIVE: CASE EVENT DATE: 20250501
